FAERS Safety Report 4766389-9 (Version None)
Quarter: 2005Q3

REPORT INFORMATION
  Report Type: 
  Country: None (occurrence: None)
  Receive Date: 20050909
  Receipt Date: 20050822
  Transmission Date: 20060218
  Serious: Yes (Death, Hospitalization)
  Sender: FDA-Public Use
  Company Number: 217512

PATIENT
  Age: 65 Year
  Sex: Male
  Weight: 79 kg

DRUGS (23)
  1. AVASTIN [Suspect]
     Indication: COLORECTAL CANCER METASTATIC
     Dosage: 400 MG, Q2W, INTRAVENOUS
     Route: 042
     Dates: start: 20050518, end: 20050822
  2. OXALIPLATIN (OXALIPLATIN) [Suspect]
     Indication: COLORECTAL CANCER METASTATIC
     Dosage: 200 MG, Q2W, INTRAVENOUS
     Route: 042
     Dates: start: 20050817, end: 20050822
  3. FLUOROURACIL [Suspect]
     Indication: COLORECTAL CANCER
     Dosage: 820 MG, Q2W, INTRAVENOUS
     Route: 042
     Dates: start: 20050518, end: 20050822
  4. LEUCOVORIN CALCIUM [Suspect]
     Indication: COLORECTAL CANCER METASTATIC
     Dosage: 400 MG, Q2W, INTRAVENOUS
     Route: 042
     Dates: start: 20050518, end: 20050822
  5. IRINOTECAN HCL [Suspect]
     Indication: DRUG USE FOR UNKNOWN INDICATION
     Dates: start: 20050518, end: 20050727
  6. NAVOBAN (TROPISETRON HYDROCHLORIDE) [Concomitant]
  7. DEXAMETHASONE [Concomitant]
  8. OXYCONTIN [Concomitant]
  9. ACETAMINOPHEN [Concomitant]
  10. TRIMETHOPRIM (TRIMETHROPRIM) [Concomitant]
  11. MAXOLON [Concomitant]
  12. POTASSIUM CHLORIDE [Concomitant]
  13. HALOPERIDOL [Concomitant]
  14. PROCHLORPERAZINE [Concomitant]
  15. MIDAZOLAM HYDROCHLORIDE [Concomitant]
  16. MORPHINE [Concomitant]
  17. OXYCODONE HCL [Concomitant]
  18. PANADOL (ACETAMINOPHEN) [Concomitant]
  19. AMPICILLIN [Concomitant]
  20. GEMTAMYCIN (GENTAMICIN SULFATE) [Concomitant]
  21. NICOTINE [Concomitant]
  22. AMITRIPTYLINE HCL [Concomitant]
  23. OMPEPRAZOLE (OMEPRAZOLE) [Concomitant]

REACTIONS (9)
  - CARDIAC ARREST [None]
  - ELECTROLYTE IMBALANCE [None]
  - HAEMATURIA [None]
  - HYPOKALAEMIA [None]
  - HYPONATRAEMIA [None]
  - PYREXIA [None]
  - RECTAL HAEMORRHAGE [None]
  - RENAL FAILURE [None]
  - VOMITING [None]
